FAERS Safety Report 24539372 (Version 1)
Quarter: 2024Q4

REPORT INFORMATION
  Report Type: Spontaneous
  Country: US (occurrence: US)
  Receive Date: 20241023
  Receipt Date: 20241023
  Transmission Date: 20250114
  Serious: Yes (Other)
  Sender: AUROBINDO
  Company Number: US-MLMSERVICE-20241002-PI214748-00213-1

PATIENT
  Age: 44 Year
  Sex: Male

DRUGS (15)
  1. MEMANTINE [Suspect]
     Active Substance: MEMANTINE
     Indication: Neuralgia
     Dosage: 5 MILLIGRAM, ONCE A DAY
     Route: 065
  2. MEMANTINE [Suspect]
     Active Substance: MEMANTINE
     Dosage: 2.5 MILLIGRAM, ONCE A DAY
     Route: 065
  3. GABAPENTIN [Suspect]
     Active Substance: GABAPENTIN
     Indication: Paraesthesia
     Dosage: UNK
     Route: 065
  4. GABAPENTIN [Suspect]
     Active Substance: GABAPENTIN
     Indication: Hypoaesthesia
  5. NORTRIPTYLINE [Suspect]
     Active Substance: NORTRIPTYLINE
     Indication: Paraesthesia
     Dosage: UNK
     Route: 065
  6. NORTRIPTYLINE [Suspect]
     Active Substance: NORTRIPTYLINE
     Indication: Hypoaesthesia
  7. METHOCARBAMOL [Suspect]
     Active Substance: METHOCARBAMOL
     Indication: Paraesthesia
     Dosage: UNK
     Route: 065
  8. METHOCARBAMOL [Suspect]
     Active Substance: METHOCARBAMOL
     Indication: Hypoaesthesia
  9. METHOCARBAMOL [Suspect]
     Active Substance: METHOCARBAMOL
     Indication: Neuralgia
  10. LIDOCAINE [Suspect]
     Active Substance: LIDOCAINE
     Indication: Paraesthesia
     Dosage: UNK
     Route: 061
  11. LIDOCAINE [Suspect]
     Active Substance: LIDOCAINE
     Indication: Hypoaesthesia
  12. PREGABALIN [Suspect]
     Active Substance: PREGABALIN
     Indication: Paraesthesia
     Dosage: UNK
     Route: 065
  13. PREGABALIN [Suspect]
     Active Substance: PREGABALIN
     Indication: Hypoaesthesia
  14. KETAMINE HYDROCHLORIDE [Suspect]
     Active Substance: KETAMINE HYDROCHLORIDE
     Indication: Paraesthesia
     Dosage: UNK
     Route: 065
  15. KETAMINE HYDROCHLORIDE [Suspect]
     Active Substance: KETAMINE HYDROCHLORIDE
     Indication: Hypoaesthesia

REACTIONS (2)
  - Sedation [Recovered/Resolved]
  - Drug ineffective [Unknown]
